FAERS Safety Report 9441953 (Version 2)
Quarter: 2013Q4

REPORT INFORMATION
  Report Type: Spontaneous
  Country: GB (occurrence: GB)
  Receive Date: 20130806
  Receipt Date: 20131202
  Transmission Date: 20140711
  Serious: Yes (Congenital Anomaly, Other)
  Sender: FDA-Public Use
  Company Number: GB-ACCORD-018758

PATIENT
  Sex: Female
  Weight: 2.65 kg

DRUGS (2)
  1. QUETIAPINE FUMARATE [Suspect]
     Indication: BIPOLAR DISORDER
     Dosage: DATE STARTED DURING PREGNANCY, STOPPED 4 WEEKS BEFORE DELIVERY.
     Route: 064
  2. DIAZEPAM [Concomitant]

REACTIONS (4)
  - Congenital hand malformation [Unknown]
  - Arthropathy [Unknown]
  - Phalangeal agenesis [Unknown]
  - Foetal exposure during pregnancy [Unknown]
